FAERS Safety Report 8390692-7 (Version None)
Quarter: 2012Q2

REPORT INFORMATION
  Report Type: 
  Country: None (occurrence: None)
  Receive Date: 20120529
  Receipt Date: 20120525
  Transmission Date: 20120825
  Serious: Yes (Death, Hospitalization, Other)
  Sender: FDA-Public Use
  Company Number: PHHY2012TR045040

PATIENT
  Age: 31 Year
  Sex: Female

DRUGS (2)
  1. WARFARIN SODIUM [Suspect]
     Indication: MITRAL VALVE REPLACEMENT
     Route: 048
  2. ASPIRIN [Concomitant]

REACTIONS (9)
  - PARESIS [None]
  - PARAESTHESIA [None]
  - PURPURA [None]
  - SPEECH DISORDER [None]
  - SOMNOLENCE [None]
  - APHASIA [None]
  - MUSCULAR WEAKNESS [None]
  - CEREBRAL HAEMORRHAGE [None]
  - PANCYTOPENIA [None]
